FAERS Safety Report 6000380-X (Version None)
Quarter: 2008Q4

REPORT INFORMATION
  Report Type: 
  Country: None (occurrence: None)
  Receive Date: 20081215
  Receipt Date: 20080819
  Transmission Date: 20090506
  Serious: No
  Sender: FDA-Public Use
  Company Number: US-AMGEN-KDL290141

PATIENT
  Sex: Female
  Weight: 79.5 kg

DRUGS (2)
  1. ENBREL [Suspect]
     Indication: RHEUMATOID ARTHRITIS
     Route: 058
     Dates: start: 20060101
  2. PLAQUENIL [Concomitant]
     Route: 048

REACTIONS (5)
  - CONTUSION [None]
  - CYSTITIS [None]
  - DIVERTICULITIS [None]
  - KIDNEY INFECTION [None]
  - RHEUMATOID ARTHRITIS [None]
